FAERS Safety Report 9593887 (Version 1)
Quarter: 2013Q4

REPORT INFORMATION
  Report Type: Spontaneous
  Country: US (occurrence: US)
  Receive Date: 20131004
  Receipt Date: 20131004
  Transmission Date: 20140711
  Serious: No
  Sender: FDA-Public Use
  Company Number: US-BAYER-2013-120254

PATIENT
  Age: 40 Year
  Sex: Male
  Weight: 99.77 kg

DRUGS (3)
  1. ALEVE TABLET [Suspect]
     Indication: BACK PAIN
     Dosage: 1 DF, PRN
     Route: 048
     Dates: start: 201302
  2. OMEPRAZOLE [Concomitant]
  3. ONE A DAY ESSENTIAL [Concomitant]
     Dosage: UNK

REACTIONS (1)
  - Drug ineffective [None]
